FAERS Safety Report 5774497-9 (Version None)
Quarter: 2008Q2

REPORT INFORMATION
  Report Type: 
  Country: None (occurrence: None)
  Receive Date: 20080616
  Receipt Date: 20080610
  Transmission Date: 20081010
  Serious: Yes (Hospitalization)
  Sender: FDA-Public Use
  Company Number: AU-BOEHRINGER INGELHEIM GMBH, GERMANY-2008-BP-09072AU

PATIENT
  Age: 63 Year
  Sex: Male

DRUGS (1)
  1. MOBIC [Suspect]
     Route: 048

REACTIONS (1)
  - ANGINA UNSTABLE [None]
